FAERS Safety Report 23347733 (Version 1)
Quarter: 2023Q4

REPORT INFORMATION
  Report Type: Spontaneous
  Country: US (occurrence: US)
  Receive Date: 20231228
  Receipt Date: 20231228
  Transmission Date: 20240110
  Serious: Yes (Other)
  Sender: FDA-Public Use
  Company Number: US-PFIZER INC-PV202300207284

PATIENT

DRUGS (6)
  1. IBRANCE [Suspect]
     Active Substance: PALBOCICLIB
     Indication: Breast cancer female
     Dosage: EVERY DAY ON DAYS 1- 21 OF Q 28 DAY
     Route: 048
     Dates: start: 20200601
  2. PALBOCICLIB ISETHIONATE [Suspect]
     Active Substance: PALBOCICLIB ISETHIONATE
     Indication: Breast cancer female
     Dosage: CYCLICAL (1-21 OF EVERY 28-DAY)
  3. PROLIA [Suspect]
     Active Substance: DENOSUMAB
     Dosage: UNK
  4. ZOLEDRONIC ACID [Concomitant]
     Active Substance: ZOLEDRONIC ACID
     Dosage: UNK
  5. GABAPENTIN [Concomitant]
     Active Substance: GABAPENTIN
     Dosage: 300 MG, 3X/DAY
  6. LETROZOLE [Concomitant]
     Active Substance: LETROZOLE
     Dosage: UNK
     Dates: start: 20200611

REACTIONS (7)
  - Neutropenia [Unknown]
  - White blood cell count decreased [Unknown]
  - Arthralgia [Recovering/Resolving]
  - Haematocrit decreased [Unknown]
  - Platelet count decreased [Unknown]
  - Pain [Unknown]
  - Upper respiratory tract infection [Unknown]

NARRATIVE: CASE EVENT DATE: 20200708
